FAERS Safety Report 8341680 (Version 2)
Quarter: 2013Q2

REPORT INFORMATION
  Report Type: Spontaneous
  Country: US (occurrence: None)
  Receive Date: 20111202
  Receipt Date: 20121203
  Transmission Date: 20140414
  Serious: Yes (Other)
  Sender: FDA-Public Use
  Company Number: 2011SP040391

PATIENT
  Age: 46 Year
  Sex: Female

DRUGS (1)
  1. NUVARING [Suspect]
     Indication: PRODUCT USED FOR UNKNOWN INDICATION
     Dates: start: 200812

REACTIONS (14)
  - PULMONARY EMBOLISM [None]
  - Infection [None]
  - Restless legs syndrome [None]
  - General physical condition abnormal [None]
  - Migraine [None]
  - Hysterectomy [None]
  - Salpingectomy [None]
  - Menometrorrhagia [None]
  - Uterine leiomyoma [None]
  - Cervicitis [None]
  - Adenomyosis [None]
  - Atelectasis [None]
  - Pulmonary infarction [None]
  - Pleural effusion [None]
